FAERS Safety Report 7958309-0 (Version None)
Quarter: 2011Q4

REPORT INFORMATION
  Report Type: 
  Country: None (occurrence: None)
  Receive Date: 20111205
  Receipt Date: 20110721
  Transmission Date: 20120403
  Serious: Yes (Life-Threatening, Hospitalization)
  Sender: FDA-Public Use
  Company Number: DE-ACTELION-A-US2011-57381

PATIENT

DRUGS (2)
  1. SILDENAFIL [Concomitant]
  2. VENTAVIS [Suspect]
     Indication: PULMONARY ARTERIAL HYPERTENSION
     Dosage: 5 ?G, QOD
     Route: 055
     Dates: start: 20090408

REACTIONS (1)
  - LUNG CANCER METASTATIC [None]
